FAERS Safety Report 6335069-0 (Version None)
Quarter: 2009Q3

REPORT INFORMATION
  Report Type: 
  Country: None (occurrence: None)
  Receive Date: 20090831
  Receipt Date: 20090824
  Transmission Date: 20100115
  Serious: Yes (Other)
  Sender: FDA-Public Use
  Company Number: A0804979A

PATIENT
  Sex: Female

DRUGS (2)
  1. LAMICTAL [Suspect]
     Route: 048
  2. UNKNOWN [Concomitant]

REACTIONS (1)
  - YELLOW SKIN [None]
